FAERS Safety Report 26099893 (Version 1)
Quarter: 2025Q4

REPORT INFORMATION
  Report Type: Spontaneous
  Country: US (occurrence: US)
  Receive Date: 20251128
  Receipt Date: 20251128
  Transmission Date: 20260117
  Serious: No
  Sender: BAUSCH AND LOMB
  Company Number: US-BAUSCHBL-2025BNL032399

PATIENT
  Age: 57 Year
  Sex: Male

DRUGS (1)
  1. LATANOPROST [Suspect]
     Active Substance: LATANOPROST
     Indication: Intraocular pressure test
     Dosage: ONE DROP IN EACH EYE AT BEDTIME

REACTIONS (3)
  - Eye irritation [Unknown]
  - Insurance issue [Unknown]
  - Product quality issue [Unknown]
